FAERS Safety Report 7532557-6 (Version None)
Quarter: 2011Q2

REPORT INFORMATION
  Report Type: 
  Country: None (occurrence: None)
  Receive Date: 20110608
  Receipt Date: 20110527
  Transmission Date: 20111010
  Serious: Yes (Other)
  Sender: FDA-Public Use
  Company Number: PHEH2010US03385

PATIENT
  Sex: Female

DRUGS (1)
  1. ZELNORM [Suspect]
     Indication: CONSTIPATION
     Dates: start: 20060801

REACTIONS (10)
  - HYPERTENSION [None]
  - WEIGHT INCREASED [None]
  - INJURY [None]
  - ABDOMINAL PAIN UPPER [None]
  - CHEST DISCOMFORT [None]
  - SLEEP APNOEA SYNDROME [None]
  - INSOMNIA [None]
  - GASTROOESOPHAGEAL REFLUX DISEASE [None]
  - CHEST PAIN [None]
  - HEADACHE [None]
